FAERS Safety Report 9274859 (Version 1)
Quarter: 2013Q2

REPORT INFORMATION
  Report Type: Spontaneous
  Country: US (occurrence: US)
  Receive Date: 20130507
  Receipt Date: 20130507
  Transmission Date: 20140414
  Serious: Yes (Other)
  Sender: FDA-Public Use
  Company Number: US-JNJFOC-20130317380

PATIENT
  Age: 78 Year
  Sex: Female

DRUGS (9)
  1. XARELTO [Suspect]
     Indication: CEREBROVASCULAR ACCIDENT PROPHYLAXIS
     Route: 048
     Dates: start: 20130221, end: 20130308
  2. XARELTO [Suspect]
     Indication: ATRIAL FIBRILLATION
     Route: 048
     Dates: start: 20130221, end: 20130308
  3. LASIX [Suspect]
     Indication: CARDIAC FAILURE CONGESTIVE
     Route: 065
     Dates: start: 20130226, end: 20130302
  4. VYTORIN [Concomitant]
     Route: 065
  5. METOPROLOL [Concomitant]
     Route: 065
  6. RAMIPRIL [Concomitant]
     Dosage: STOPPED ON 26-FEB
     Route: 065
  7. HCTZ [Concomitant]
     Indication: HYPERTENSION
     Dosage: 12.5, STOPPED ON 26-FEB
     Route: 065
  8. HCTZ [Concomitant]
     Indication: CARDIAC FAILURE CONGESTIVE
     Dosage: 12.5, STOPPED ON 26-FEB
     Route: 065
  9. AMLODIPINE [Concomitant]
     Dosage: STOPPED ABOUT 26-FEB
     Route: 065

REACTIONS (1)
  - Urticaria [Recovered/Resolved]
